FAERS Safety Report 7811624-3 (Version None)
Quarter: 2011Q4

REPORT INFORMATION
  Report Type: 
  Country: None (occurrence: None)
  Receive Date: 20111013
  Receipt Date: 20111003
  Transmission Date: 20120403
  Serious: Yes (Life-Threatening, Hospitalization)
  Sender: FDA-Public Use
  Company Number: ES-VERTEX PHARMACEUTICALS INC.-AE-2011-000494

PATIENT
  Sex: Female
  Weight: 50.9 kg

DRUGS (11)
  1. PEGASYS [Suspect]
     Route: 058
     Dates: start: 20110919
  2. VX-950 [Suspect]
     Indication: HEPATITIS C
     Route: 048
     Dates: start: 20110517, end: 20110714
  3. PARACETAMOL [Concomitant]
     Dates: start: 20110517
  4. ENALAPRIL MALEATE [Concomitant]
     Indication: HYPERTENSION
  5. COPEGUS [Suspect]
     Route: 048
     Dates: start: 20110919
  6. IRON [Concomitant]
     Dates: start: 20110712
  7. FOLIC ACID [Concomitant]
     Dates: start: 20110712
  8. PEGASYS [Suspect]
     Indication: HEPATITIS C
     Route: 058
     Dates: start: 20110517, end: 20110712
  9. PREGABALIN [Concomitant]
     Indication: HEADACHE
  10. ZOLMITRIPTAN [Concomitant]
     Indication: HEADACHE
  11. COPEGUS [Suspect]
     Indication: HEPATITIS C
     Route: 048
     Dates: start: 20110517, end: 20110714

REACTIONS (3)
  - NEUTROPENIA [None]
  - THROMBOCYTOPENIA [None]
  - ANAEMIA [None]
